FAERS Safety Report 25183992 (Version 1)
Quarter: 2025Q2

REPORT INFORMATION
  Report Type: Spontaneous
  Country: CN (occurrence: CN)
  Receive Date: 20250410
  Receipt Date: 20250410
  Transmission Date: 20250717
  Serious: Yes (Hospitalization)
  Sender: MERCK SHARP AND DOHME
  Company Number: CN-009507513-2270781

PATIENT
  Age: 75 Year
  Sex: Male
  Weight: 60 kg

DRUGS (1)
  1. INVANZ [Suspect]
     Active Substance: ERTAPENEM SODIUM
     Indication: Abdominal infection
     Route: 041
     Dates: start: 20250320, end: 20250328

REACTIONS (5)
  - Epilepsy [Recovering/Resolving]
  - Ocular icterus [Unknown]
  - Rales [Unknown]
  - Incision site discharge [Unknown]
  - Abdominal wall wound [Unknown]

NARRATIVE: CASE EVENT DATE: 20250301
